FAERS Safety Report 4683944-5 (Version None)
Quarter: 2005Q2

REPORT INFORMATION
  Report Type: 
  Country: None (occurrence: None)
  Receive Date: 20050607
  Receipt Date: 20050527
  Transmission Date: 20051028
  Serious: Yes (Death)
  Sender: FDA-Public Use
  Company Number: US-MERCK-0506USA00360

PATIENT
  Age: 67 Year
  Sex: Female
  Weight: 60 kg

DRUGS (5)
  1. VIOXX [Suspect]
     Indication: ARTHRALGIA
     Route: 048
     Dates: start: 19991012, end: 20001108
  2. VIOXX [Suspect]
     Route: 048
  3. TAMOXIFEN CITRATE [Concomitant]
     Route: 065
  4. HYDREA [Concomitant]
     Route: 065
  5. ASPIRIN [Concomitant]
     Route: 048

REACTIONS (10)
  - ARTERIOSCLEROSIS [None]
  - CARDIO-RESPIRATORY ARREST [None]
  - CHEST DISCOMFORT [None]
  - DIZZINESS [None]
  - DYSPNOEA [None]
  - EMOTIONAL DISTRESS [None]
  - PHLEBITIS SUPERFICIAL [None]
  - RENAL IMPAIRMENT [None]
  - TENDONITIS [None]
  - VENOUS INSUFFICIENCY [None]
